FAERS Safety Report 21331494 (Version 1)
Quarter: 2022Q3

REPORT INFORMATION
  Report Type: Other
  Country: EG (occurrence: None)
  Receive Date: 20220914
  Receipt Date: 20220914
  Transmission Date: 20221027
  Serious: Yes (Other)
  Sender: FDA-Public Use
  Company Number: EG-ROCHE-3176089

PATIENT
  Sex: Female
  Weight: 83 kg

DRUGS (1)
  1. OCREVUS [Suspect]
     Active Substance: OCRELIZUMAB
     Indication: Multiple sclerosis
     Route: 042
     Dates: start: 20200209

REACTIONS (7)
  - Multiple sclerosis [Recovered/Resolved]
  - Nasopharyngitis [Recovered/Resolved]
  - Sneezing [Recovered/Resolved]
  - Rhinorrhoea [Recovered/Resolved]
  - Depressed mood [Unknown]
  - Influenza [Unknown]
  - Hypoaesthesia [Recovered/Resolved]

NARRATIVE: CASE EVENT DATE: 20220825
